FAERS Safety Report 4366845-1 (Version None)
Quarter: 2004Q2

REPORT INFORMATION
  Report Type: 
  Country: None (occurrence: None)
  Receive Date: 20040528
  Receipt Date: 20040122
  Transmission Date: 20050107
  Serious: No
  Sender: FDA-Public Use
  Company Number: US-GLAXOSMITHKLINE-A0494712A

PATIENT
  Sex: Female

DRUGS (2)
  1. BACTROBAN [Suspect]
     Indication: SKIN INFECTION
     Route: 061
     Dates: start: 20040119
  2. MULTIVITAMIN [Concomitant]

REACTIONS (1)
  - OEDEMA PERIPHERAL [None]
